FAERS Safety Report 25074883 (Version 2)
Quarter: 2025Q1

REPORT INFORMATION
  Report Type: Spontaneous
  Country: US (occurrence: US)
  Receive Date: 20250313
  Receipt Date: 20250317
  Transmission Date: 20250408
  Serious: Yes (Life-Threatening, Other)
  Sender: PFIZER
  Company Number: US-MLMSERVICE-20250303-PI431609-00082-1

PATIENT
  Age: 82 Year
  Sex: Female

DRUGS (1)
  1. CARBOPLATIN [Suspect]
     Active Substance: CARBOPLATIN
     Indication: Ovarian cancer metastatic

REACTIONS (1)
  - Anaphylactic reaction [Unknown]
